FAERS Safety Report 23070964 (Version 2)
Quarter: 2023Q4

REPORT INFORMATION
  Report Type: Spontaneous
  Country: US (occurrence: US)
  Receive Date: 20231016
  Receipt Date: 20231103
  Transmission Date: 20240110
  Serious: No
  Sender: FDA-Public Use
  Company Number: US-PFIZER INC-202300323624

PATIENT
  Age: 57 Year
  Sex: Female

DRUGS (3)
  1. PAXLOVID [Suspect]
     Active Substance: NIRMATRELVIR\RITONAVIR
     Indication: COVID-19 treatment
     Dosage: UNK
     Route: 048
     Dates: start: 20231008
  2. SIMVASTATIN [Concomitant]
     Active Substance: SIMVASTATIN
     Dosage: UNK
     Route: 048
     Dates: start: 20211001, end: 20231007
  3. NOW C 1000 [Concomitant]
     Dosage: UNK
     Route: 048
     Dates: start: 20200601, end: 20231007

REACTIONS (1)
  - Dysgeusia [Recovering/Resolving]

NARRATIVE: CASE EVENT DATE: 20231009
